FAERS Safety Report 12155136 (Version 3)
Quarter: 2016Q4

REPORT INFORMATION
  Report Type: Spontaneous
  Country: NL (occurrence: NL)
  Receive Date: 20160307
  Receipt Date: 20161028
  Transmission Date: 20170207
  Serious: Yes (Death, Other)
  Sender: FDA-Public Use
  Company Number: NL-ALEXION PHARMACEUTICALS INC-A201601432

PATIENT
  Age: 1 Year
  Sex: Male

DRUGS (2)
  1. SOLIRIS [Suspect]
     Active Substance: ECULIZUMAB
     Indication: HAEMOLYTIC URAEMIC SYNDROME
     Dosage: 600 MG, UNK
     Route: 042
     Dates: start: 20151112
  2. SOLIRIS [Suspect]
     Active Substance: ECULIZUMAB
     Dosage: 600 MG, UNK
     Route: 042

REACTIONS (5)
  - Biopsy bile duct abnormal [Unknown]
  - Haemolytic uraemic syndrome [Fatal]
  - Hepatic failure [Fatal]
  - Cholestasis [Unknown]
  - Escherichia test positive [Fatal]

NARRATIVE: CASE EVENT DATE: 20151116
